FAERS Safety Report 11173292 (Version 6)
Quarter: 2015Q3

REPORT INFORMATION
  Report Type: Spontaneous
  Country: DE (occurrence: DE)
  Receive Date: 20150608
  Receipt Date: 20150918
  Transmission Date: 20151125
  Serious: Yes (Death, Life-Threatening, Other)
  Sender: FDA-Public Use
  Company Number: PHHY2015DE067204

PATIENT
  Sex: Male

DRUGS (10)
  1. JAKAFI [Suspect]
     Active Substance: RUXOLITINIB
     Indication: MYELOFIBROSIS
     Dosage: 30 MG, UNK
     Route: 048
     Dates: start: 201405, end: 20150508
  2. FLUDARABINE [Concomitant]
     Active Substance: FLUDARABINE PHOSPHATE
     Indication: CHEMOTHERAPY
     Route: 065
  3. MTX [Concomitant]
     Active Substance: METHOTREXATE SODIUM
     Indication: IMMUNOSUPPRESSION
     Dosage: 21 MG, QD
     Route: 042
     Dates: start: 20150521
  4. SANDIMMUN [Concomitant]
     Active Substance: CYCLOSPORINE
     Dosage: 31 MG, QD
     Route: 042
  5. MTX [Concomitant]
     Active Substance: METHOTREXATE SODIUM
     Dosage: 21 MG, QD
     Route: 042
     Dates: start: 20150524
  6. JAKAFI [Suspect]
     Active Substance: RUXOLITINIB
     Indication: MYELOPROLIFERATIVE DISORDER
  7. CICLOSPORIN [Suspect]
     Active Substance: CYCLOSPORINE
     Indication: STEM CELL TRANSPLANT
     Route: 065
  8. SANDIMMUN [Concomitant]
     Active Substance: CYCLOSPORINE
     Indication: IMMUNOSUPPRESSION
     Dosage: 1.5 MG/KG, UNK
     Route: 042
  9. TREOSULFAN [Concomitant]
     Active Substance: TREOSULFAN
     Indication: CHEMOTHERAPY
     Dosage: 12MG/M2 ONCE DAILY
     Route: 042
     Dates: start: 20150512, end: 20150514
  10. TREOSULFAN [Concomitant]
     Active Substance: TREOSULFAN
     Dosage: 30MG/M2 ONCE DAILY
     Route: 042
     Dates: end: 20150516

REACTIONS (20)
  - Splenomegaly [Fatal]
  - Haemorrhagic diathesis [Recovered/Resolved]
  - Haematoma [Unknown]
  - Renal failure [Unknown]
  - Pyrexia [Fatal]
  - Pulmonary haemorrhage [Fatal]
  - Mucosal haemorrhage [Recovered/Resolved]
  - Oral mucosa haematoma [Unknown]
  - Respiratory gas exchange disorder [Fatal]
  - Skin disorder [Unknown]
  - Off label use [Unknown]
  - Sepsis [Fatal]
  - Leukocytosis [Fatal]
  - Renal impairment [Recovered/Resolved]
  - Thrombocytopenia [Unknown]
  - Aspiration [Fatal]
  - Acute myeloid leukaemia [Fatal]
  - Mucosal inflammation [Unknown]
  - Blister [Unknown]
  - Haemoglobin decreased [Unknown]

NARRATIVE: CASE EVENT DATE: 20150525
